FAERS Safety Report 21937473 (Version 1)
Quarter: 2023Q1

REPORT INFORMATION
  Report Type: Spontaneous
  Country: US (occurrence: None)
  Receive Date: 20230201
  Receipt Date: 20230201
  Transmission Date: 20230417
  Serious: No
  Sender: FDA-Public Use
  Company Number: None

PATIENT
  Age: 33 Year
  Sex: Female

DRUGS (3)
  1. FENTANYL [Suspect]
     Active Substance: FENTANYL
  2. HYDROMORPHONE HCL [Suspect]
     Active Substance: HYDROMORPHONE HYDROCHLORIDE
  3. LORAZEPAM [Suspect]
     Active Substance: LORAZEPAM

REACTIONS (6)
  - Agonal respiration [None]
  - Cardio-respiratory arrest [None]
  - Tachycardia [None]
  - Product communication issue [None]
  - Product design issue [None]
  - Product use issue [None]
